FAERS Safety Report 12736607 (Version 1)
Quarter: 2016Q3

REPORT INFORMATION
  Report Type: Spontaneous
  Country: US (occurrence: US)
  Receive Date: 20160913
  Receipt Date: 20160913
  Transmission Date: 20161109
  Serious: No
  Sender: FDA-Public Use
  Company Number: US-JNJFOC-20160702432

PATIENT
  Sex: Female

DRUGS (4)
  1. ULTRAM ER [Suspect]
     Active Substance: TRAMADOL HYDROCHLORIDE
     Indication: BACK PAIN
     Dosage: START DATE OF THE DRUG: ON AN UNSPECIFIED DATE AROUND 10 YEARS AGO
     Route: 048
  2. TRAMADOL. [Suspect]
     Active Substance: TRAMADOL
     Indication: BACK PAIN
     Dosage: START DATE OF THE DRUG: ON AN UNSPECIFIED DATE AROUND 10 YEARS AGO
     Route: 065
  3. TRAMADOL. [Suspect]
     Active Substance: TRAMADOL
     Indication: FIBROMYALGIA
     Dosage: START DATE OF THE DRUG: ON AN UNSPECIFIED DATE AROUND 10 YEARS AGO
     Route: 065
  4. ULTRAM ER [Suspect]
     Active Substance: TRAMADOL HYDROCHLORIDE
     Indication: FIBROMYALGIA
     Dosage: START DATE OF THE DRUG: ON AN UNSPECIFIED DATE AROUND 10 YEARS AGO
     Route: 048

REACTIONS (1)
  - Headache [Unknown]

NARRATIVE: CASE EVENT DATE: 2014
